FAERS Safety Report 9231293 (Version 3)
Quarter: 2013Q2

REPORT INFORMATION
  Report Type: Spontaneous
  Country: FR (occurrence: FR)
  Receive Date: 20130415
  Receipt Date: 20130429
  Transmission Date: 20140414
  Serious: Yes (Other)
  Sender: FDA-Public Use
  Company Number: FR-GILEAD-2013-0072392

PATIENT
  Sex: Female

DRUGS (2)
  1. EVIPLERA [Suspect]
     Indication: HIV INFECTION
     Dosage: UNK
     Dates: start: 20121227, end: 20130308
  2. EVIPLERA [Suspect]
     Dosage: UNK

REACTIONS (1)
  - Acute hepatitis C [Unknown]
